FAERS Safety Report 13392745 (Version 1)
Quarter: 2017Q1

REPORT INFORMATION
  Report Type: Spontaneous
  Country: US (occurrence: US)
  Receive Date: 20170331
  Receipt Date: 20170331
  Transmission Date: 20170429
  Serious: No
  Sender: FDA-Public Use
  Company Number: US-MYLANLABS-2016M1051435

PATIENT
  Sex: Male
  Weight: 103 kg

DRUGS (2)
  1. LIDODERM [Suspect]
     Active Substance: LIDOCAINE
     Indication: PAIN
     Dosage: 5 %, QD  12HR ON/ 12HR OFF
     Route: 003
     Dates: start: 201303, end: 201603
  2. FENTANYL. [Suspect]
     Active Substance: FENTANYL
     Indication: PAIN
     Dosage: 50 ?G, QH, CHANGE Q72H
     Route: 062
     Dates: start: 201506, end: 201512

REACTIONS (3)
  - Pruritus [Unknown]
  - Multiple allergies [Unknown]
  - Rash [Unknown]
